FAERS Safety Report 18359742 (Version 1)
Quarter: 2020Q4

REPORT INFORMATION
  Report Type: Spontaneous
  Country: IE (occurrence: IE)
  Receive Date: 20201008
  Receipt Date: 20201008
  Transmission Date: 20210114
  Serious: Yes (Death)
  Sender: FDA-Public Use
  Company Number: IE-BAUSCH-BL-2020-028102

PATIENT
  Age: 37 Year
  Sex: Female
  Weight: 102 kg

DRUGS (3)
  1. XELJANZ [Suspect]
     Active Substance: TOFACITINIB CITRATE
     Indication: STILL^S DISEASE
     Route: 065
  2. PREDNISOLONE (GENERIC) (PREDNISOLONE SODIUM PHOSPHATE) [Suspect]
     Active Substance: PREDNISOLONE SODIUM PHOSPHATE
     Indication: STILL^S DISEASE
     Route: 065
  3. LEFLUNOMIDE (G) [Suspect]
     Active Substance: LEFLUNOMIDE
     Indication: STILL^S DISEASE
     Route: 065

REACTIONS (2)
  - Pneumonia [Fatal]
  - Staphylococcal sepsis [Fatal]
